FAERS Safety Report 8327122-7 (Version None)
Quarter: 2012Q2

REPORT INFORMATION
  Report Type: 
  Country: None (occurrence: None)
  Receive Date: 20120501
  Receipt Date: 20120402
  Transmission Date: 20120825
  Serious: Yes (Other)
  Sender: FDA-Public Use
  Company Number: US-SANOFI-AVENTIS-2012SA022654

PATIENT
  Sex: Female

DRUGS (1)
  1. APIDRA [Suspect]
     Dosage: AS NEEDED BASED ON BLOOD SUGAR LEVELS IF OVER 180 ( 1 UNIT), 200-250 ( 2 UNITS), 250-300 (3 UNITS)
     Route: 058
     Dates: start: 20110101

REACTIONS (2)
  - HYPOGLYCAEMIA [None]
  - BLOOD GLUCOSE INCREASED [None]
